FAERS Safety Report 7411130-4 (Version None)
Quarter: 2011Q2

REPORT INFORMATION
  Report Type: 
  Country: None (occurrence: None)
  Receive Date: 20110413
  Receipt Date: 20100217
  Transmission Date: 20111010
  Serious: No
  Sender: FDA-Public Use
  Company Number: US-BRISTOL-MYERS SQUIBB COMPANY-14982938

PATIENT
  Sex: Male

DRUGS (3)
  1. RADIATION THERAPY [Concomitant]
     Indication: HEAD AND NECK CANCER
  2. ERBITUX [Suspect]
     Indication: HEAD AND NECK CANCER
  3. BENADRYL [Concomitant]
     Indication: PREMEDICATION

REACTIONS (1)
  - CHILLS [None]
